FAERS Safety Report 21486592 (Version 1)
Quarter: 2022Q4

REPORT INFORMATION
  Report Type: Spontaneous
  Country: CN (occurrence: CN)
  Receive Date: 20221020
  Receipt Date: 20221020
  Transmission Date: 20230112
  Serious: Yes (Other)
  Sender: FDA-Public Use
  Company Number: CN-BIOVITRUM-2022CN11987

PATIENT

DRUGS (1)
  1. AVATROMBOPAG [Suspect]
     Active Substance: AVATROMBOPAG
     Indication: Thrombocytopenia
     Dosage: STARTED WITH INITIAL DOSE WAS 20MG DAILY, WHICH WAS SUBSEQUENTLY INCREASED BY 20MG EVERY 2WEEKS IN A

REACTIONS (3)
  - Graft versus host disease [Unknown]
  - Hepatic function abnormal [Unknown]
  - Off label use [Unknown]
